FAERS Safety Report 8051877-2 (Version None)
Quarter: 2012Q1

REPORT INFORMATION
  Report Type: 
  Country: None (occurrence: None)
  Receive Date: 20120110
  Receipt Date: 20111228
  Transmission Date: 20120608
  Serious: Yes (Other)
  Sender: FDA-Public Use
  Company Number: AXC-2011-000542

PATIENT

DRUGS (3)
  1. URSODIOL [Suspect]
     Indication: FOETAL EXPOSURE DURING PREGNANCY
     Dosage: 600 MG, QD, TRANSPLACENTAL
     Route: 064
  2. MAGNESIUM SULFATE (MAGNESIUM SULFATE) UNKNOWN, UNKNOWN UNK TO UNK [Concomitant]
  3. PREDNISOLONE [Suspect]
     Indication: FOETAL EXPOSURE DURING PREGNANCY
     Dosage: 60 MG, QD, TRANSPLACENTAL 10 MG, QD, TRANSPLACENTAL 25 MG, QD, TRANSPLACENTAL
     Route: 064

REACTIONS (3)
  - FOETAL EXPOSURE DURING PREGNANCY [None]
  - LOW BIRTH WEIGHT BABY [None]
  - APGAR SCORE LOW [None]
